FAERS Safety Report 7434198-8 (Version None)
Quarter: 2011Q2

REPORT INFORMATION
  Report Type: 
  Country: None (occurrence: None)
  Receive Date: 20110425
  Receipt Date: 20110415
  Transmission Date: 20111010
  Serious: No
  Sender: FDA-Public Use
  Company Number: US-PFIZER INC-2011084276

PATIENT
  Sex: Female

DRUGS (1)
  1. STREPTOMYCIN [Suspect]
     Dosage: UNK

REACTIONS (3)
  - LOOSE TOOTH [None]
  - JOINT DISLOCATION [None]
  - DYSTONIA [None]
